FAERS Safety Report 13361214 (Version 3)
Quarter: 2017Q2

REPORT INFORMATION
  Report Type: Report from Study
  Country: None (occurrence: TN)
  Receive Date: 20170322
  Receipt Date: 20170418
  Transmission Date: 20170830
  Serious: Yes (Hospitalization)
  Sender: FDA-Public Use
  Company Number: TN-ABBVIE-17P-160-1910346-00

PATIENT
  Sex: Female
  Weight: 47 kg

DRUGS (1)
  1. HUMIRA [Suspect]
     Active Substance: ADALIMUMAB
     Indication: CROHN^S DISEASE
     Route: 058
     Dates: start: 2015, end: 20170207

REACTIONS (5)
  - Hypoalbuminaemia [Recovered/Resolved]
  - Intestinal obstruction [Recovering/Resolving]
  - Umbilical hernia [Not Recovered/Not Resolved]
  - Purulence [Recovering/Resolving]
  - Weight fluctuation [Unknown]

NARRATIVE: CASE EVENT DATE: 2017
